FAERS Safety Report 11087502 (Version 5)
Quarter: 2018Q3

REPORT INFORMATION
  Report Type: Spontaneous
  Country: US (occurrence: US)
  Receive Date: 20150504
  Receipt Date: 20180907
  Transmission Date: 20181010
  Serious: Yes (Other)
  Sender: FDA-Public Use
  Company Number: US-BAYER-2015-183057

PATIENT
  Age: 35 Year
  Sex: Female

DRUGS (2)
  1. SKYLA [Suspect]
     Active Substance: LEVONORGESTREL
     Indication: CONTRACEPTION
     Dosage: 14 MCG/24HR, CONT
     Route: 015
     Dates: start: 20150414, end: 20150527
  2. SKYLA [Suspect]
     Active Substance: LEVONORGESTREL
     Indication: CONTRACEPTION
     Dosage: 14 MCG/24HR, CONT
     Route: 015
     Dates: start: 20150220, end: 20150408

REACTIONS (5)
  - Drug ineffective [None]
  - Medication error [None]
  - Device dislocation [None]
  - Device expulsion [None]
  - Pregnancy with contraceptive device [None]

NARRATIVE: CASE EVENT DATE: 201503
